FAERS Safety Report 7659782-8 (Version None)
Quarter: 2011Q3

REPORT INFORMATION
  Report Type: 
  Country: None (occurrence: None)
  Receive Date: 20110805
  Receipt Date: 20110803
  Transmission Date: 20111222
  Serious: Yes (Life-Threatening, Hospitalization)
  Sender: FDA-Public Use
  Company Number: PHHY2011GB69810

PATIENT
  Age: 21 Year
  Sex: Female

DRUGS (6)
  1. MOMETASONE FUROATE [Concomitant]
     Indication: SEASONAL ALLERGY
     Dosage: 1 DF, PRN
     Route: 045
  2. TOPIRAMATE [Concomitant]
     Indication: EPILEPSY
     Dosage: 25 MG, QD
     Route: 048
     Dates: end: 20110714
  3. TRAMADOL HCL [Concomitant]
     Indication: POLYCYSTIC OVARIES
     Dosage: 50 MG, PRN
     Route: 048
  4. ALBUTEROL [Suspect]
     Indication: ASTHMA
     Dosage: 2 DF, PRN
     Dates: start: 20110712, end: 20110713
  5. DICLOFENAC SODIUM [Concomitant]
     Indication: POLYCYSTIC OVARIES
     Dosage: 50 MG, PRN
     Route: 048
  6. HYOSCINE HBR HYT [Concomitant]
     Indication: POLYCYSTIC OVARIES
     Dosage: UNK UKN, PRN
     Route: 048
     Dates: start: 20110714

REACTIONS (6)
  - DYSPHAGIA [None]
  - SWOLLEN TONGUE [None]
  - LIP SWELLING [None]
  - ANGIOEDEMA [None]
  - ANAPHYLACTIC REACTION [None]
  - PARAESTHESIA [None]
